FAERS Safety Report 23716465 (Version 1)
Quarter: 2024Q2

REPORT INFORMATION
  Report Type: Spontaneous
  Country: US (occurrence: US)
  Receive Date: 20240408
  Receipt Date: 20240408
  Transmission Date: 20240716
  Serious: No
  Sender: FDA-Public Use
  Company Number: US-BEIGENE-BGN-2024-004541

PATIENT

DRUGS (3)
  1. BRUKINSA [Suspect]
     Active Substance: ZANUBRUTINIB
     Indication: Chronic lymphocytic leukaemia
     Dosage: 320 MILLIGRAM (4 CAPSULES), QD
     Route: 065
     Dates: start: 202305
  2. BRUKINSA [Suspect]
     Active Substance: ZANUBRUTINIB
     Dosage: 320 MILLIGRAM (4 CAPSULES), QD
     Route: 065
  3. ACYCLOVIR [Concomitant]
     Active Substance: ACYCLOVIR
     Dosage: UNK
     Dates: start: 20230505

REACTIONS (3)
  - Gastrointestinal bacterial overgrowth [Not Recovered/Not Resolved]
  - Diarrhoea [Not Recovered/Not Resolved]
  - Abdominal pain upper [Not Recovered/Not Resolved]
